FAERS Safety Report 9338861 (Version 1)
Quarter: 2013Q2

REPORT INFORMATION
  Report Type: Report from Study
  Country: CA (occurrence: CA)
  Receive Date: 20130610
  Receipt Date: 20130610
  Transmission Date: 20140414
  Serious: Yes (Other)
  Sender: FDA-Public Use
  Company Number: CA-ROCHE-1200050

PATIENT
  Age: 57 Year
  Sex: Female
  Weight: 70.3 kg

DRUGS (12)
  1. HERCEPTIN [Suspect]
     Indication: BREAST CANCER
     Route: 042
     Dates: start: 20121231, end: 20130515
  2. DILANTIN [Concomitant]
  3. DECADRON [Concomitant]
  4. LORAZEPAM [Concomitant]
     Route: 065
  5. CELEXA [Concomitant]
     Indication: BACK PAIN
  6. MORPHINE [Concomitant]
     Indication: BACK PAIN
  7. NYSTATIN [Concomitant]
     Route: 065
  8. VITAMIN B12 [Concomitant]
  9. VITAMIN B6 [Concomitant]
  10. ACIDOPHILUS [Concomitant]
  11. TAXOTERE [Concomitant]
     Indication: BREAST CANCER
  12. TINZAPARIN SODIUM [Concomitant]

REACTIONS (3)
  - Nasopharyngitis [Unknown]
  - Cough [Unknown]
  - Disease progression [Not Recovered/Not Resolved]
